FAERS Safety Report 17802198 (Version 3)
Quarter: 2020Q4

REPORT INFORMATION
  Report Type: Spontaneous
  Country: US (occurrence: US)
  Receive Date: 20200519
  Receipt Date: 20201006
  Transmission Date: 20210113
  Serious: No
  Sender: FDA-Public Use
  Company Number: US-PFIZER INC-2020197760

PATIENT
  Age: 81 Year
  Sex: Female
  Weight: 83.01 kg

DRUGS (1)
  1. IBRANCE [Suspect]
     Active Substance: PALBOCICLIB
     Indication: BREAST CANCER
     Dosage: 5 MG, UNK

REACTIONS (3)
  - Neoplasm progression [Not Recovered/Not Resolved]
  - Alopecia [Unknown]
  - Product prescribing error [Unknown]
